FAERS Safety Report 6014718-0 (Version None)
Quarter: 2008Q4

REPORT INFORMATION
  Report Type: 
  Country: None (occurrence: None)
  Receive Date: 20081126
  Receipt Date: 20071128
  Transmission Date: 20090506
  Serious: Yes (Hospitalization)
  Sender: FDA-Public Use
  Company Number: 162298USA

PATIENT
  Age: 68 Year
  Sex: Female
  Weight: 55.3388 kg

DRUGS (8)
  1. CARBOPLATIN [Suspect]
     Indication: LUNG NEOPLASM MALIGNANT
     Dosage: 450 AND 50 MG VIALS (525 MG), INTRAVENOUS (NOT OTHERWISE SPECIFIED)
     Route: 042
     Dates: start: 20070911, end: 20070911
  2. CARBOPLATIN [Suspect]
  3. PACLITAXEL [Suspect]
     Dosage: (325 MG), INTRAVENOUS (NOT OTHERWISE SPECIFIED)
     Route: 042
     Dates: start: 20070911
  4. DOLASETRON MESILATE [Concomitant]
  5. DEXAMETHASONE [Concomitant]
  6. DIPHENHYDRAMINE HYDROCHLORIDE [Concomitant]
  7. CIMETIDINE [Concomitant]
  8. ... [Concomitant]

REACTIONS (4)
  - APNOEA [None]
  - HYPERHIDROSIS [None]
  - LOSS OF CONSCIOUSNESS [None]
  - PULSE ABSENT [None]
